FAERS Safety Report 5837607-0 (Version None)
Quarter: 2008Q3

REPORT INFORMATION
  Report Type: 
  Country: None (occurrence: None)
  Receive Date: 20080807
  Receipt Date: 20080730
  Transmission Date: 20090109
  Serious: Yes (Other)
  Sender: FDA-Public Use
  Company Number: PHHY2008ES15916

PATIENT
  Age: 45 Year
  Sex: Female

DRUGS (3)
  1. TRILEPTAL [Suspect]
     Indication: TRIGEMINAL NEURALGIA
     Dosage: 300 MG, BID
     Route: 048
     Dates: start: 20070901
  2. LYRICA [Suspect]
     Indication: TRIGEMINAL NEURALGIA
     Dosage: 75 MG, BID
     Route: 048
     Dates: start: 20070901
  3. TRADONAL [Suspect]
     Indication: TRIGEMINAL NEURALGIA
     Dosage: 100 MG, ONCE/SINGLE
     Route: 048
     Dates: start: 20080412, end: 20080413

REACTIONS (2)
  - DYSARTHRIA [None]
  - MUSCULAR WEAKNESS [None]
